FAERS Safety Report 9881284 (Version 1)
Quarter: 2014Q1

REPORT INFORMATION
  Report Type: Spontaneous
  Country: FR (occurrence: FR)
  Receive Date: 20140207
  Receipt Date: 20140207
  Transmission Date: 20141002
  Serious: Yes (Life-Threatening)
  Sender: FDA-Public Use
  Company Number: FR-ASTRAZENECA-2014SE07810

PATIENT
  Age: 10894 Day
  Sex: Female

DRUGS (4)
  1. DIPRIVAN [Suspect]
     Indication: INDUCTION OF ANAESTHESIA
     Dosage: 150+50 MG
     Route: 042
     Dates: start: 20140120, end: 20140120
  2. MIVACRON [Suspect]
     Indication: INDUCTION OF ANAESTHESIA
     Route: 042
     Dates: start: 20140120, end: 20140120
  3. KETAMINE [Suspect]
     Indication: INDUCTION OF ANAESTHESIA
     Route: 042
     Dates: start: 20140120, end: 20140120
  4. SUFENTA [Suspect]
     Indication: INDUCTION OF ANAESTHESIA
     Route: 042
     Dates: start: 20140120, end: 20140120

REACTIONS (1)
  - Bronchospasm paradoxical [Recovered/Resolved]
